FAERS Safety Report 16096979 (Version 1)
Quarter: 2019Q1

REPORT INFORMATION
  Report Type: Spontaneous
  Country: IT (occurrence: IT)
  Receive Date: 20190320
  Receipt Date: 20190320
  Transmission Date: 20190418
  Serious: Yes (Hospitalization)
  Sender: FDA-Public Use
  Company Number: IT-SA-2019SA074769

PATIENT
  Age: 67 Year
  Sex: Male

DRUGS (2)
  1. CLEXANE T [Suspect]
     Active Substance: ENOXAPARIN SODIUM
     Indication: PULMONARY EMBOLISM
     Dosage: 12000 KIU, QD
     Route: 059
     Dates: start: 20180612
  2. CLEXANE T [Suspect]
     Active Substance: ENOXAPARIN SODIUM
     Dosage: DOSE REDUCED
     Route: 059

REACTIONS (6)
  - Anaemia [Recovering/Resolving]
  - Haematoma [Recovering/Resolving]
  - Hypotension [Recovering/Resolving]
  - Overdose [Unknown]
  - Haemorrhage [Recovering/Resolving]
  - Swelling [Recovering/Resolving]

NARRATIVE: CASE EVENT DATE: 20181115
